APPROVED DRUG PRODUCT: NORETHINDRONE ACETATE
Active Ingredient: NORETHINDRONE ACETATE
Strength: 5MG
Dosage Form/Route: TABLET;ORAL
Application: A075951 | Product #001 | TE Code: AB
Applicant: BARR LABORATORIES INC
Approved: May 25, 2001 | RLD: No | RS: Yes | Type: RX